FAERS Safety Report 12726759 (Version 2)
Quarter: 2016Q3

REPORT INFORMATION
  Report Type: Report from Study
  Country: CA (occurrence: CA)
  Receive Date: 20160908
  Receipt Date: 20160920
  Transmission Date: 20161109
  Serious: Yes (Other)
  Sender: FDA-Public Use
  Company Number: PHHY2016CA119297

PATIENT
  Sex: Male

DRUGS (1)
  1. ENTRESTO [Suspect]
     Active Substance: SACUBITRIL\VALSARTAN
     Indication: CARDIAC FAILURE
     Dosage: 100 MG, UNK
     Route: 048
     Dates: start: 20160815

REACTIONS (4)
  - Pruritus [Recovered/Resolved]
  - Hypertension [Recovered/Resolved]
  - Blood creatinine increased [Unknown]
  - Glomerular filtration rate decreased [Unknown]
